FAERS Safety Report 17981964 (Version 1)
Quarter: 2020Q3

REPORT INFORMATION
  Report Type: Spontaneous
  Country: US (occurrence: US)
  Receive Date: 20200706
  Receipt Date: 20200706
  Transmission Date: 20201103
  Serious: No
  Sender: FDA-Public Use
  Company Number: US-HIKMA PHARMACEUTICALS USA INC.-US-H14001-20-02493

PATIENT
  Sex: Male
  Weight: 163.44 kg

DRUGS (3)
  1. AMOXICILLIN. [Suspect]
     Active Substance: AMOXICILLIN
     Indication: PRODUCT USED FOR UNKNOWN INDICATION
     Route: 065
  2. LENVIMA [Concomitant]
     Active Substance: LENVATINIB
     Route: 048
     Dates: start: 201503
  3. LENVIMA [Concomitant]
     Active Substance: LENVATINIB
     Indication: THYROID CANCER
     Route: 048
     Dates: start: 201503

REACTIONS (2)
  - Diarrhoea [Unknown]
  - Abdominal pain [Unknown]
